FAERS Safety Report 5019844-0 (Version None)
Quarter: 2006Q2

REPORT INFORMATION
  Report Type: 
  Country: None (occurrence: None)
  Receive Date: 20060605
  Receipt Date: 20060605
  Transmission Date: 20061013
  Serious: Yes (Hospitalization)
  Sender: FDA-Public Use
  Company Number: None

PATIENT
  Sex: Female
  Weight: 63.5036 kg

DRUGS (8)
  1. VANCOMYCIN [Suspect]
     Dosage: 1.0 GM Q 12 HOURS IV
     Route: 042
     Dates: start: 20060515, end: 20060516
  2. ASPIRIN [Concomitant]
  3. SOLU-CORTEF [Concomitant]
  4. LOVENOX [Concomitant]
  5. PROTONIX [Concomitant]
  6. ZOSYN [Concomitant]
  7. AVELOX [Concomitant]
  8. LEVOPHED [Concomitant]

REACTIONS (4)
  - BLOOD CREATININE INCREASED [None]
  - FALL [None]
  - PNEUMONIA [None]
  - SYNCOPE [None]
